FAERS Safety Report 6033110-6 (Version None)
Quarter: 2009Q1

REPORT INFORMATION
  Report Type: 
  Country: None (occurrence: None)
  Receive Date: 20090109
  Receipt Date: 20081226
  Transmission Date: 20090719
  Serious: Yes (Hospitalization)
  Sender: FDA-Public Use
  Company Number: JP-BAYER-200910004BYL

PATIENT
  Age: 64 Year
  Sex: Male
  Weight: 62 kg

DRUGS (8)
  1. NEXAVAR [Suspect]
     Indication: RENAL CELL CARCINOMA STAGE IV
     Dosage: TOTAL DAILY DOSE: 800 MG  UNIT DOSE: 200 MG
     Route: 048
     Dates: start: 20080812, end: 20080922
  2. NEXAVAR [Suspect]
     Dosage: UNIT DOSE: 200 MG
     Route: 048
     Dates: start: 20080926, end: 20081105
  3. DIOVAN [Concomitant]
     Route: 048
     Dates: start: 20080109
  4. NORVASC [Concomitant]
     Route: 048
     Dates: start: 20080109
  5. HARNAL D [Concomitant]
     Route: 048
     Dates: start: 20080109
  6. TAKEPRON [Concomitant]
     Route: 048
     Dates: start: 20080331
  7. LOXONIN [Concomitant]
     Indication: PAIN
     Route: 048
     Dates: start: 20080331
  8. PASTARON [Concomitant]
     Indication: PROPHYLAXIS
     Route: 061
     Dates: start: 20080811

REACTIONS (8)
  - ABDOMINAL DISCOMFORT [None]
  - ANAEMIA [None]
  - DECREASED APPETITE [None]
  - DYSPHONIA [None]
  - EPISTAXIS [None]
  - HYPERTENSION [None]
  - MALAISE [None]
  - PALMAR-PLANTAR ERYTHRODYSAESTHESIA SYNDROME [None]
